FAERS Safety Report 5626994-4 (Version None)
Quarter: 2008Q1

REPORT INFORMATION
  Report Type: 
  Country: None (occurrence: None)
  Receive Date: 20080122
  Receipt Date: 20070920
  Transmission Date: 20080703
  Serious: No
  Sender: FDA-Public Use
  Company Number: 07H-163-0313222-00

PATIENT
  Age: 36 Year
  Sex: Male

DRUGS (11)
  1. AMINOSYN II (AMINOSYN) (AMINOSYN) [Suspect]
     Indication: PARENTERAL NUTRITION
     Dosage: 500 ML, INTRAVENOUS
     Route: 042
     Dates: end: 20070913
  2. DEXTROSE 70% [Suspect]
     Indication: PARENTERAL NUTRITION
     Dosage: 950 NL, INTRAVENOUS
     Route: 042
     Dates: end: 20070913
  3. MAGNESIUM SULFATE [Suspect]
     Indication: PARENTERAL NUTRITION
     Dosage: 9 MILLIEQUIVALENTS, INTRAVENOUS
     Route: 042
     Dates: end: 20070913
  4. POTASSIUM ACETATE [Suspect]
     Indication: PARENTERAL NUTRITION
     Dosage: 40 MILLIEQUIVALENTS, INTRAVENOUS
     Route: 042
     Dates: end: 20070913
  5. POTASSIUM CHLORIDE [Suspect]
     Indication: PARENTERAL NUTRITION
     Dosage: 30 MILLIEQUIVALENTS, INTRAVENOUS
     Route: 042
     Dates: end: 20070913
  6. SODIUM CHLORIDE [Suspect]
     Indication: PARENTERAL NUTRITION
     Dosage: 80 MILLIEQUIVALENTS, INTRAVENOUS
     Route: 042
     Dates: end: 20070913
  7. STERILE WATER FOR INJECTION (STERILE WATER) (STERILE WATER) [Suspect]
     Indication: PARENTERAL NUTRITION
     Dosage: 550 ML, INTRAVENOUS
     Route: 042
     Dates: end: 20070913
  8. CALCIUM GLUCONATE [Suspect]
     Dosage: 9 MILLIEQUIVALENTS, INTRAVENOUS
     Route: 042
  9. POTASSIUM PHOSPHATES [Suspect]
     Indication: PARENTERAL NUTRITION
     Dosage: 12 MILLIMOL, INTRAVENOUS
     Route: 042
     Dates: end: 20070913
  10. MULTIVITAMIN [Suspect]
     Indication: PARENTERAL NUTRITION
     Dosage: 10 ML, INTRAVENOUS
     Route: 042
     Dates: end: 20070913
  11. TRACE-4 MULTIPLE TRACE [Suspect]
     Indication: PARENTERAL NUTRITION
     Dosage: 5 ML, INTRAVENOUS
     Route: 042
     Dates: end: 20070913

REACTIONS (3)
  - BLOOD GLUCOSE INCREASED [None]
  - MEDICATION ERROR [None]
  - OVERDOSE [None]
